FAERS Safety Report 12319080 (Version 1)
Quarter: 2016Q2

REPORT INFORMATION
  Report Type: Spontaneous
  Country: US (occurrence: US)
  Receive Date: 20160429
  Receipt Date: 20160429
  Transmission Date: 20160815
  Serious: No
  Sender: FDA-Public Use
  Company Number: US-ASTRAZENECA-2016SE33683

PATIENT
  Sex: Female

DRUGS (4)
  1. ARIMIDEX [Suspect]
     Active Substance: ANASTROZOLE
     Indication: SURGERY
     Route: 048
     Dates: start: 201603, end: 201603
  2. ALDACTAZIDE [Concomitant]
     Active Substance: HYDROCHLOROTHIAZIDE\SPIRONOLACTONE
     Indication: THYROID DISORDER
     Dosage: DAILY
     Route: 048
     Dates: start: 1986
  3. POTASSIUM [Concomitant]
     Active Substance: POTASSIUM
     Indication: THYROID DISORDER
     Route: 048
     Dates: start: 1986
  4. THYROID [Concomitant]
     Active Substance: LEVOTHYROXINE\LIOTHYRONINE
     Indication: THYROID DISORDER
     Dosage: DAILY
     Route: 048
     Dates: start: 1986

REACTIONS (5)
  - Chest pain [Unknown]
  - Dyspnoea [Unknown]
  - Muscle spasms [Unknown]
  - Joint swelling [Unknown]
  - Fluid retention [Unknown]
